FAERS Safety Report 24350451 (Version 1)
Quarter: 2024Q3

REPORT INFORMATION
  Report Type: Spontaneous
  Country: RU (occurrence: RU)
  Receive Date: 20240923
  Receipt Date: 20240923
  Transmission Date: 20241017
  Serious: No
  Sender: ROCHE
  Company Number: RU-ROCHE-3512382

PATIENT
  Age: 33 Year
  Sex: Female

DRUGS (10)
  1. TRASTUZUMAB [Suspect]
     Active Substance: TRASTUZUMAB
     Indication: Breast cancer
     Dosage: (8 MG/KG LOADING DOSE), 21-DAY CYCLE? FREQUENCY TEXT:21-DAY CYCLE
     Route: 065
     Dates: start: 20230605
  2. TRASTUZUMAB [Suspect]
     Active Substance: TRASTUZUMAB
     Route: 065
     Dates: start: 20231013
  3. PERTUZUMAB [Suspect]
     Active Substance: PERTUZUMAB
     Indication: Breast cancer
     Dosage: 840 MG LOADING DOSE,21-DAY CYCLE? FREQUENCY TEXT:21-DAY CYCLE.
     Route: 065
     Dates: start: 20230605
  4. PERTUZUMAB [Suspect]
     Active Substance: PERTUZUMAB
     Route: 065
     Dates: start: 20231013
  5. PERTUZUMAB [Suspect]
     Active Substance: PERTUZUMAB
     Route: 042
     Dates: start: 202310
  6. TRASTUZUMAB [Suspect]
     Active Substance: TRASTUZUMAB
     Indication: Breast cancer
     Route: 041
     Dates: start: 202310
  7. DOCETAXEL [Suspect]
     Active Substance: DOCETAXEL\DOCETAXEL ANHYDROUS
     Indication: Breast cancer
     Dosage: 21-DAY CYCLE.? FREQUENCY TEXT:21-DAY CYCLE
     Route: 065
     Dates: start: 20230605
  8. GOSERELIN [Suspect]
     Active Substance: GOSERELIN
     Indication: Breast cancer
     Route: 065
     Dates: start: 20231013
  9. ZOLEDRONIC ACID [Concomitant]
     Active Substance: ZOLEDRONIC ACID
  10. EMPEGFILGRASTIM [Concomitant]
     Active Substance: EMPEGFILGRASTIM

REACTIONS (2)
  - Diarrhoea [Unknown]
  - Nausea [Unknown]
